FAERS Safety Report 9969546 (Version 1)
Quarter: 2014Q1

REPORT INFORMATION
  Report Type: Spontaneous
  Country: US (occurrence: US)
  Receive Date: 20140306
  Receipt Date: 20140306
  Transmission Date: 20141002
  Serious: Yes (Hospitalization, Other)
  Sender: FDA-Public Use
  Company Number: US-AMGEN-USASP2014015495

PATIENT
  Age: 81 Year
  Sex: Female
  Weight: 62.13 kg

DRUGS (18)
  1. ENBREL [Suspect]
     Indication: PRODUCT USED FOR UNKNOWN INDICATION
     Dosage: 25 MG, QWK
     Route: 058
  2. RESTASIS [Concomitant]
     Dosage: 0.05 %, UNK
  3. LASIX                              /00032601/ [Concomitant]
     Dosage: 20 MG, UNK
  4. PREDNISONE [Concomitant]
     Dosage: 50 MG, UNK
  5. AMLODIPINE [Concomitant]
     Dosage: 2.5 MG, UNK
  6. FLUTICASONE [Concomitant]
     Dosage: 50 MUG, UNK
  7. LEUCOVORIN CA [Concomitant]
     Dosage: 5 MG, UNK
  8. METHOTREXATE [Concomitant]
     Dosage: 2.5 MG, UNK
  9. LYRICA [Concomitant]
     Dosage: 50 MG, UNK
  10. CLONAZEPAM [Concomitant]
     Dosage: 1 MG, UNK
  11. CLINDAMYCIN [Concomitant]
     Dosage: 150 MG, UNK
  12. OXYCODONE [Concomitant]
     Dosage: 5 MG, UNK
  13. LIDODERM [Concomitant]
     Dosage: 5 %, UNK
  14. VITAMIN D                          /00107901/ [Concomitant]
     Dosage: 1000 UNIT, UNK
  15. CALCIUM D                          /00944201/ [Concomitant]
     Dosage: UNK
  16. VITAMIN B-12 [Concomitant]
     Dosage: 500 MUG, UNK
     Route: 058
  17. POTASSIUM [Concomitant]
     Dosage: 25 MEQ, UNK
  18. VITAMIN B6 [Concomitant]
     Dosage: 50 MG, UNK

REACTIONS (3)
  - Cellulitis [Unknown]
  - Abdominal discomfort [Unknown]
  - Injection site erythema [Unknown]
